FAERS Safety Report 16395839 (Version 1)
Quarter: 2019Q2

REPORT INFORMATION
  Report Type: Spontaneous
  Country: US (occurrence: US)
  Receive Date: 20190605
  Receipt Date: 20190605
  Transmission Date: 20190711
  Serious: No
  Sender: FDA-Public Use
  Company Number: PHEH2019US023257

PATIENT

DRUGS (1)
  1. COSENTYX [Suspect]
     Active Substance: SECUKINUMAB
     Indication: PSORIASIS
     Dosage: UNK
     Route: 065

REACTIONS (6)
  - Fungal infection [Unknown]
  - Oropharyngeal pain [Unknown]
  - Dry mouth [Unknown]
  - Psoriasis [Unknown]
  - Dry eye [Unknown]
  - Nasal dryness [Unknown]
